FAERS Safety Report 5941893-6 (Version None)
Quarter: 2008Q4

REPORT INFORMATION
  Report Type: 
  Country: None (occurrence: None)
  Receive Date: 20081031
  Receipt Date: 20081016
  Transmission Date: 20090506
  Serious: Yes (Hospitalization, Other)
  Sender: FDA-Public Use
  Company Number: 2008S1018935

PATIENT
  Age: 59 Year
  Sex: Female

DRUGS (5)
  1. METFORMIN HCL [Suspect]
     Indication: DIABETES MELLITUS
     Dosage: 2000 MG; DAILY;ORAL
     Route: 048
     Dates: start: 20080926, end: 20080926
  2. METFORMIN HCL [Suspect]
     Indication: DIABETES MELLITUS
     Dosage: 2000 MG; DAILY;ORAL
     Route: 048
     Dates: start: 20081001, end: 20081001
  3. CIPRO [Concomitant]
  4. PRISTIQUE [Concomitant]
  5. GABAPENTIN [Concomitant]

REACTIONS (10)
  - DYSSTASIA [None]
  - FAECAL INCONTINENCE [None]
  - FEELING COLD [None]
  - HYPERHIDROSIS [None]
  - INFLUENZA [None]
  - MALAISE [None]
  - MIDDLE INSOMNIA [None]
  - NAUSEA [None]
  - VERTIGO [None]
  - VOMITING [None]
